FAERS Safety Report 6910816-5 (Version None)
Quarter: 2010Q3

REPORT INFORMATION
  Report Type: 
  Country: None (occurrence: None)
  Receive Date: 20100806
  Receipt Date: 20100728
  Transmission Date: 20110219
  Serious: Yes (Other)
  Sender: FDA-Public Use
  Company Number: BR-B.I. PHARMACEUTICALS,INC./RIDGEFIELD-2010-BP-08569BP

PATIENT
  Age: 23 Year
  Sex: Female

DRUGS (9)
  1. VIRAMUNE [Suspect]
     Indication: ANTIVIRAL TREATMENT
     Route: 048
     Dates: start: 20030327, end: 20030409
  2. VIRAMUNE [Suspect]
     Route: 048
     Dates: start: 20030410
  3. COMBIVIR [Concomitant]
     Indication: ANTIVIRAL TREATMENT
     Route: 048
     Dates: start: 20030327
  4. AMOXICILLIN TRIHYDRATE [Concomitant]
  5. AZITHROMYCIN [Concomitant]
  6. BACTRIM [Concomitant]
  7. CEFALEXIN [Concomitant]
  8. IRON PREPARATIONS [Concomitant]
  9. METRONIDAZOLE [Concomitant]

REACTIONS (1)
  - STILLBIRTH [None]
